FAERS Safety Report 7687182-3 (Version None)
Quarter: 2011Q3

REPORT INFORMATION
  Report Type: 
  Country: None (occurrence: None)
  Receive Date: 20110816
  Receipt Date: 20110802
  Transmission Date: 20111222
  Serious: Yes (Hospitalization, Other)
  Sender: FDA-Public Use
  Company Number: US-SANOFI-AVENTIS-2011SA051654

PATIENT
  Age: 81 Year
  Sex: Male
  Weight: 72.6 kg

DRUGS (8)
  1. BACLOFEN [Suspect]
     Dosage: FREQUENCY: 5 TIMES/DAY
     Route: 048
  2. ALTACE [Suspect]
     Indication: BLOOD PRESSURE
     Route: 048
  3. PLAVIX [Suspect]
     Indication: PROPHYLAXIS
     Route: 048
     Dates: start: 20091201
  4. LORTAB [Suspect]
     Indication: PAIN
     Route: 048
  5. NEURONTIN [Suspect]
     Indication: NERVE INJURY
     Route: 048
  6. XANAX [Suspect]
     Indication: ANXIETY
     Route: 048
  7. AMLODIPINE BESYLATE [Suspect]
     Indication: BLOOD PRESSURE
     Route: 048
  8. TRAMADOL HCL [Concomitant]

REACTIONS (3)
  - CARDIAC PACEMAKER INSERTION [None]
  - CONVULSION [None]
  - GASTRIC ULCER HAEMORRHAGE [None]
